FAERS Safety Report 8196216-1 (Version None)
Quarter: 2012Q1

REPORT INFORMATION
  Report Type: 
  Country: None (occurrence: None)
  Receive Date: 20120306
  Receipt Date: 20120224
  Transmission Date: 20120608
  Serious: Yes (Other)
  Sender: FDA-Public Use
  Company Number: 2012AP000226

PATIENT
  Age: 36 Year
  Sex: Male

DRUGS (6)
  1. AMOXICILLIN [Concomitant]
  2. TUAMINOHEPTANE SULFATE (TUAMINOHEPTANE SULFATE) [Concomitant]
  3. CLARITHROMYCIN [Suspect]
     Indication: ACUTE SINUSITIS
     Dosage: 1 G;QD
     Route: 048
     Dates: start: 20120111, end: 20120112
  4. AMBROXOL HYDROCHLORIDE (AMBROXOL HYDROCHLORIDE) [Concomitant]
  5. ACETYLCYSTEINE [Concomitant]
  6. BECLOMETHASONE DIPROPIONATE [Concomitant]

REACTIONS (1)
  - PUSTULAR PSORIASIS [None]
